FAERS Safety Report 22323115 (Version 1)
Quarter: 2023Q2

REPORT INFORMATION
  Report Type: Spontaneous
  Country: US (occurrence: None)
  Receive Date: 20230512
  Receipt Date: 20230512
  Transmission Date: 20230721
  Serious: Yes (Death, Hospitalization)
  Sender: FDA-Public Use
  Company Number: None

PATIENT
  Age: 58 Year
  Sex: Female

DRUGS (1)
  1. OFATUMUMAB [Suspect]
     Active Substance: OFATUMUMAB
     Indication: Multiple sclerosis
     Dosage: 20 MG MONTLY SUBCUTANEOUS?
     Route: 058

REACTIONS (2)
  - Acute respiratory distress syndrome [None]
  - COVID-19 pneumonia [None]

NARRATIVE: CASE EVENT DATE: 20230406
